FAERS Safety Report 9381757 (Version 4)
Quarter: 2014Q1

REPORT INFORMATION
  Report Type: Report from Study
  Country: US (occurrence: US)
  Receive Date: 20130703
  Receipt Date: 20140228
  Transmission Date: 20141002
  Serious: Yes (Hospitalization, Other)
  Sender: FDA-Public Use
  Company Number: US-PFIZER INC-2013187755

PATIENT
  Age: 61 Year
  Sex: Male
  Weight: 84.6 kg

DRUGS (14)
  1. LINEZOLID [Suspect]
     Indication: DEVICE RELATED INFECTION
     Dosage: 600 MG, 2X/DAY
     Route: 048
     Dates: start: 20130427, end: 20130616
  2. HEPARIN [Concomitant]
     Dosage: UNK
  3. DIGOXIN [Concomitant]
     Dosage: UNK
  4. CARVEDILOL [Concomitant]
     Dosage: UNK
  5. ASPIRIN [Concomitant]
     Dosage: UNK
  6. AMIODARONE [Concomitant]
     Dosage: UNK
  7. PERI-COLACE [Concomitant]
     Dosage: UNK
  8. OMEPRAZOLE [Concomitant]
     Dosage: UNK
  9. ONDANSETRON [Concomitant]
     Dosage: UNK
  10. ACETAMINOPHEN [Concomitant]
     Dosage: UNK
  11. FUROSEMIDE [Concomitant]
     Dosage: UNK
  12. RIFAMPIN [Concomitant]
     Dosage: UNK
     Dates: end: 20130612
  13. LISINOPRIL [Concomitant]
     Dosage: UNK
  14. HYDROMORPHONE [Concomitant]
     Dosage: UNK

REACTIONS (1)
  - Erythropoiesis abnormal [Recovered/Resolved]
